FAERS Safety Report 21310430 (Version 1)
Quarter: 2022Q3

REPORT INFORMATION
  Report Type: Other
  Country: None (occurrence: US)
  Receive Date: 20220909
  Receipt Date: 20220909
  Transmission Date: 20221026
  Serious: Yes (Hospitalization, Other)
  Sender: FDA-Public Use
  Company Number: US-ACI HealthCare Limited-2132695

PATIENT
  Age: 21 Year
  Sex: Male

DRUGS (2)
  1. LEVETIRACETAM [Suspect]
     Active Substance: LEVETIRACETAM
     Indication: Seizure
     Route: 042
  2. OXCARBAZEPINE [Concomitant]
     Active Substance: OXCARBAZEPINE
     Route: 065

REACTIONS (1)
  - Delirium [Unknown]
